FAERS Safety Report 9358978 (Version 1)
Quarter: 2013Q2

REPORT INFORMATION
  Report Type: Spontaneous
  Country: US (occurrence: US)
  Receive Date: 20130620
  Receipt Date: 20130620
  Transmission Date: 20140414
  Serious: Yes (Other)
  Sender: FDA-Public Use
  Company Number: US-CTI_01580_2013

PATIENT
  Sex: 0

DRUGS (1)
  1. CARDENE IV [Suspect]
     Indication: PRODUCT USED FOR UNKNOWN INDICATION
     Dosage: DF
     Route: 042
     Dates: start: 2013

REACTIONS (3)
  - Weaning failure [Recovered/Resolved]
  - Oxygen saturation decreased [Recovering/Resolving]
  - Ventilation perfusion mismatch [Unknown]
